FAERS Safety Report 8406750 (Version 4)
Quarter: 2016Q2

REPORT INFORMATION
  Report Type: Report from Study
  Country: AT (occurrence: AT)
  Receive Date: 20120215
  Receipt Date: 20160411
  Transmission Date: 20160815
  Serious: Yes (Other)
  Sender: FDA-Public Use
  Company Number: AT-ROCHE-1033262

PATIENT

DRUGS (5)
  1. PREDNISOLONE. [Suspect]
     Active Substance: PREDNISOLONE
     Indication: DIFFUSE LARGE B-CELL LYMPHOMA
     Route: 048
  2. RITUXIMAB [Suspect]
     Active Substance: RITUXIMAB
     Indication: DIFFUSE LARGE B-CELL LYMPHOMA
     Route: 042
  3. DOXORUBICIN [Suspect]
     Active Substance: DOXORUBICIN
     Indication: DIFFUSE LARGE B-CELL LYMPHOMA
     Route: 042
  4. CYCLOPHOSPHAMIDE. [Suspect]
     Active Substance: CYCLOPHOSPHAMIDE
     Indication: DIFFUSE LARGE B-CELL LYMPHOMA
     Route: 042
  5. VINCRISTINE [Suspect]
     Active Substance: VINCRISTINE
     Indication: DIFFUSE LARGE B-CELL LYMPHOMA
     Route: 042

REACTIONS (16)
  - Febrile neutropenia [Unknown]
  - Syncope [Unknown]
  - Pneumonia [Unknown]
  - Hypotension [Unknown]
  - Pyrexia [Unknown]
  - Diarrhoea [Unknown]
  - Neutropenia [Unknown]
  - Blood creatinine increased [Unknown]
  - Cardiotoxicity [Unknown]
  - Cardiac failure [Unknown]
  - Infection [Unknown]
  - Stomatitis [Unknown]
  - Hypertension [Unknown]
  - Angina pectoris [Unknown]
  - Nephropathy toxic [Unknown]
  - Haematuria [Unknown]
